FAERS Safety Report 24334800 (Version 1)
Quarter: 2024Q3

REPORT INFORMATION
  Report Type: Report from Study
  Country: CA (occurrence: CA)
  Receive Date: 20240918
  Receipt Date: 20240918
  Transmission Date: 20241017
  Serious: Yes (Hospitalization, Other)
  Sender: BAYER
  Company Number: CA-BAYER-2024A129015

PATIENT
  Age: 38 Year
  Sex: Male

DRUGS (9)
  1. ADEMPAS [Suspect]
     Active Substance: RIOCIGUAT
     Indication: Pulmonary hypertension
     Dosage: 2.5 MG, TID
     Dates: start: 20240619
  2. TRACLEER [Concomitant]
     Active Substance: BOSENTAN
  3. ALBUTEROL [Concomitant]
     Active Substance: ALBUTEROL
  4. FUROSEMIDE [Concomitant]
     Active Substance: FUROSEMIDE
  5. LAMOTRIGINE [Concomitant]
     Active Substance: LAMOTRIGINE
  6. FLUTICASONE [Concomitant]
     Active Substance: FLUTICASONE
  7. TYLENOL [Concomitant]
     Active Substance: ACETAMINOPHEN
  8. MELATONIN [Concomitant]
     Active Substance: MELATONIN
  9. SPIRONOLACTONE [Concomitant]
     Active Substance: SPIRONOLACTONE

REACTIONS (13)
  - Fluid retention [Not Recovered/Not Resolved]
  - Gastrointestinal disorder [Not Recovered/Not Resolved]
  - Diarrhoea haemorrhagic [Not Recovered/Not Resolved]
  - Pneumonia [None]
  - Adverse event [None]
  - Weight decreased [None]
  - Haemorrhoids [None]
  - Chest pain [None]
  - Dyspnoea [None]
  - Dizziness [None]
  - Haemoglobin decreased [None]
  - Anaemia [None]
  - Blood potassium decreased [None]

NARRATIVE: CASE EVENT DATE: 20240906
